FAERS Safety Report 8978412 (Version 1)
Quarter: 2012Q4

REPORT INFORMATION
  Report Type: Report from Study
  Country: NL (occurrence: NL)
  Receive Date: 20121220
  Receipt Date: 20121220
  Transmission Date: 20130627
  Serious: Yes (Hospitalization, Other)
  Sender: FDA-Public Use
  Company Number: NL-BAXTER-2012BAX027507

PATIENT
  Age: 72 Year
  Sex: Male
  Weight: 60 kg

DRUGS (12)
  1. ENDOXAN I.V., POEDER VOOR OPLOSSING VOOR INJECTIE 200, 500, 1000 MG [Suspect]
     Indication: DIFFUSE LARGE B-CELL LYMPHOMA
     Route: 042
     Dates: start: 20081018, end: 20081226
  2. ENDOXAN I.V., POEDER VOOR OPLOSSING VOOR INJECTIE 200, 500, 1000 MG [Suspect]
     Route: 042
  3. RITUXIMAB [Suspect]
     Indication: DIFFUSE LARGE B-CELL LYMPHOMA
     Route: 042
     Dates: start: 20081018, end: 20081226
  4. RITUXIMAB [Suspect]
     Route: 042
  5. VINCRISTINE [Suspect]
     Indication: DIFFUSE LARGE B-CELL LYMPHOMA
     Route: 042
     Dates: start: 20081018, end: 20081212
  6. VINCRISTINE [Suspect]
     Route: 042
  7. DOXORUBICIN [Suspect]
     Indication: DIFFUSE LARGE B-CELL LYMPHOMA
     Route: 042
     Dates: start: 20081018, end: 20081226
  8. DOXORUBICIN [Suspect]
     Route: 042
  9. PREDNISONE [Suspect]
     Indication: DIFFUSE LARGE B-CELL LYMPHOMA
     Route: 048
     Dates: start: 20081018, end: 20081230
  10. PREDNISONE [Suspect]
     Route: 048
  11. G-CSF [Suspect]
     Indication: DIFFUSE LARGE B-CELL LYMPHOMA
     Route: 058
     Dates: start: 20081019, end: 20081123
  12. G-CSF [Suspect]
     Route: 058

REACTIONS (2)
  - Pyrexia [Recovered/Resolved]
  - Viral infection [Unknown]
